FAERS Safety Report 6470652-3 (Version None)
Quarter: 2009Q4

REPORT INFORMATION
  Report Type: 
  Country: None (occurrence: None)
  Receive Date: 20091203
  Receipt Date: 20091125
  Transmission Date: 20100525
  Serious: Yes (Other)
  Sender: FDA-Public Use
  Company Number: US-PFIZER INC-2009286294

PATIENT
  Sex: Female
  Weight: 63 kg

DRUGS (13)
  1. CHANTIX [Suspect]
     Indication: SMOKING CESSATION THERAPY
     Dosage: 0.5 MG, 1X/DAY
     Route: 048
     Dates: start: 20091017, end: 20090101
  2. LEVOTHYROXINE [Concomitant]
     Indication: HYPOTHYROIDISM
     Dosage: UNK
     Route: 048
     Dates: start: 20080101
  3. ENTOCORT EC [Concomitant]
     Indication: CROHN'S DISEASE
     Dosage: 3 MG, 1X/DAY
     Route: 048
     Dates: start: 20010101
  4. ENTOCORT EC [Concomitant]
     Indication: IRRITABLE BOWEL SYNDROME
  5. DONNATAL [Concomitant]
     Indication: GASTROINTESTINAL PAIN
     Dosage: 20 MG, AS NEEDED
     Route: 048
     Dates: start: 20040101
  6. BACLOFEN [Concomitant]
     Indication: NEUROGENIC BLADDER
     Dosage: 10 MG, 4X/DAY
     Route: 048
     Dates: start: 20091001
  7. TRIMETHOPRIM [Concomitant]
     Indication: INFECTION PROPHYLAXIS
     Dosage: 100 MG, 1X/DAY
     Route: 048
  8. PAXIL [Concomitant]
     Indication: ANXIETY
     Dosage: 20 MG, 1X/DAY
     Route: 048
     Dates: start: 20010101
  9. PAXIL [Concomitant]
     Indication: OBSESSIVE-COMPULSIVE DISORDER
  10. XANAX [Concomitant]
     Indication: ANXIETY
     Dosage: 1 MG, UNK
     Route: 048
     Dates: start: 19990101
  11. RESTORIL [Concomitant]
     Indication: INSOMNIA
     Dosage: 30 MG, 1X/DAY
     Route: 048
     Dates: start: 20070101
  12. PREMPRO [Concomitant]
     Indication: MENOPAUSE
     Dosage: 0.3 MG, 1X/DAY
     Route: 048
     Dates: start: 20070101
  13. MIRALAX [Concomitant]
     Indication: CONSTIPATION
     Dosage: UNK
     Dates: start: 20070101

REACTIONS (7)
  - ANXIETY [None]
  - CONFUSIONAL STATE [None]
  - CONVERSION DISORDER [None]
  - DEPRESSION [None]
  - MANIA [None]
  - MOOD SWINGS [None]
  - OBSESSIVE-COMPULSIVE DISORDER [None]
